FAERS Safety Report 20144098 (Version 2)
Quarter: 2021Q4

REPORT INFORMATION
  Report Type: Other
  Country: US (occurrence: None)
  Receive Date: 20211203
  Receipt Date: 20211215
  Transmission Date: 20220303
  Serious: Yes (Other)
  Sender: FDA-Public Use
  Company Number: US-ROCHE-2964643

PATIENT
  Sex: Female

DRUGS (27)
  1. ACTEMRA [Suspect]
     Active Substance: TOCILIZUMAB
     Indication: Giant cell arteritis
     Dosage: INJECT 162MG/0.9 ML SUBCUTANEOUSLY EVERY WEEK(S)
     Route: 058
  2. ACTEMRA [Suspect]
     Active Substance: TOCILIZUMAB
  3. ACTEMRA [Suspect]
     Active Substance: TOCILIZUMAB
  4. ACTEMRA [Suspect]
     Active Substance: TOCILIZUMAB
     Indication: Steroid therapy
  5. ACTEMRA [Suspect]
     Active Substance: TOCILIZUMAB
  6. ACTEMRA [Suspect]
     Active Substance: TOCILIZUMAB
  7. ACTEMRA [Suspect]
     Active Substance: TOCILIZUMAB
     Indication: Autoimmune disorder
  8. ACTEMRA [Suspect]
     Active Substance: TOCILIZUMAB
  9. ACTEMRA [Suspect]
     Active Substance: TOCILIZUMAB
  10. ACTEMRA [Suspect]
     Active Substance: TOCILIZUMAB
     Indication: Immune system disorder
  11. ACTEMRA [Suspect]
     Active Substance: TOCILIZUMAB
  12. ACTEMRA [Suspect]
     Active Substance: TOCILIZUMAB
  13. PREDNISONE [Concomitant]
     Active Substance: PREDNISONE
  14. SULFAMETHOXAZOLE\TRIMETHOPRIM [Concomitant]
     Active Substance: SULFAMETHOXAZOLE\TRIMETHOPRIM
  15. ATORVASTATIN [Concomitant]
     Active Substance: ATORVASTATIN
  16. FUROSEMIDE [Concomitant]
     Active Substance: FUROSEMIDE
  17. LEVOTHYROXINE [Concomitant]
     Active Substance: LEVOTHYROXINE
  18. LOSARTAN [Concomitant]
     Active Substance: LOSARTAN
  19. SPIRONOLACTONE [Concomitant]
     Active Substance: SPIRONOLACTONE
  20. TRAMADOL [Concomitant]
     Active Substance: TRAMADOL
  21. AGGRENOX [Concomitant]
     Active Substance: ASPIRIN\DIPYRIDAMOLE
  22. DOXAZOSIN [Concomitant]
     Active Substance: DOXAZOSIN MESYLATE
  23. EZETIMIBE [Concomitant]
     Active Substance: EZETIMIBE
  24. FERRIC [Concomitant]
  25. FLONASE [Concomitant]
     Active Substance: FLUTICASONE PROPIONATE
  26. MAGNESIUM [Concomitant]
     Active Substance: MAGNESIUM
  27. RANITIDINE [Concomitant]
     Active Substance: RANITIDINE

REACTIONS (2)
  - Pericardial effusion [Unknown]
  - Hypertension [Unknown]
